FAERS Safety Report 12253711 (Version 1)
Quarter: 2016Q2

REPORT INFORMATION
  Report Type: Spontaneous
  Country: US (occurrence: None)
  Receive Date: 20160408
  Receipt Date: 20160408
  Transmission Date: 20160815
  Serious: No
  Sender: FDA-Public Use
  Company Number: None

PATIENT
  Age: 50 Year
  Sex: Female

DRUGS (1)
  1. ORENCIA [Suspect]
     Active Substance: ABATACEPT
     Indication: RHEUMATOID ARTHRITIS
     Route: 058
     Dates: start: 201507, end: 20160404

REACTIONS (4)
  - Pruritus [None]
  - Rash erythematous [None]
  - Skin disorder [None]
  - Skin ulcer [None]

NARRATIVE: CASE EVENT DATE: 20160405
